FAERS Safety Report 4543768-6 (Version None)
Quarter: 2005Q1

REPORT INFORMATION
  Report Type: 
  Country: None (occurrence: None)
  Receive Date: 20050103
  Receipt Date: 20041230
  Transmission Date: 20050727
  Serious: Yes (Disabling)
  Sender: FDA-Public Use
  Company Number: FI-MERCK-0412FIN00020

PATIENT
  Age: 51 Year
  Sex: Male

DRUGS (5)
  1. FOSAMAX [Suspect]
     Indication: OSTEOPOROSIS
     Route: 048
     Dates: start: 20040814, end: 20041012
  2. PSYLLIUM HUSK [Concomitant]
     Indication: CONSTIPATION
     Route: 048
     Dates: start: 20021031
  3. SODIUM PICOSULFATE [Concomitant]
     Indication: CONSTIPATION
     Route: 048
     Dates: start: 20040224
  4. POLYETHYLENE GLYCOL 3350 AND POTASSIUM CHLORIDE AND SODIUM BICARBONATE [Concomitant]
     Indication: CONSTIPATION
     Route: 048
     Dates: start: 20040224
  5. CHOLECALCIFEROL [Concomitant]
     Indication: OSTEOPOROSIS
     Route: 048
     Dates: start: 20040217

REACTIONS (3)
  - ORAL SOFT TISSUE DISORDER [None]
  - TONGUE COATED [None]
  - TONGUE INJURY [None]
